FAERS Safety Report 17996398 (Version 1)
Quarter: 2020Q3

REPORT INFORMATION
  Report Type: Report from Study
  Country: None (occurrence: DE)
  Receive Date: 20200709
  Receipt Date: 20200709
  Transmission Date: 20201103
  Serious: Yes (Hospitalization)
  Sender: FDA-Public Use
  Company Number: DE-ABBVIE-20K-062-3470588-00

PATIENT
  Sex: Female

DRUGS (1)
  1. HUMIRA [Suspect]
     Active Substance: ADALIMUMAB
     Indication: RHEUMATOID ARTHRITIS
     Route: 058
     Dates: start: 20140528, end: 201807

REACTIONS (8)
  - Arteriosclerosis coronary artery [Recovering/Resolving]
  - Foot deformity [Recovering/Resolving]
  - Rheumatoid arthritis [Not Recovered/Not Resolved]
  - Myocardial infarction [Recovering/Resolving]
  - Back pain [Not Recovered/Not Resolved]
  - Gastric ulcer perforation [Recovered/Resolved]
  - Pain in extremity [Not Recovered/Not Resolved]
  - Musculoskeletal stiffness [Unknown]

NARRATIVE: CASE EVENT DATE: 2015
